FAERS Safety Report 18164333 (Version 5)
Quarter: 2020Q3

REPORT INFORMATION
  Report Type: Spontaneous
  Country: US (occurrence: US)
  Receive Date: 20200818
  Receipt Date: 20200910
  Transmission Date: 20201103
  Serious: Yes (Hospitalization)
  Sender: FDA-Public Use
  Company Number: US-PFIZER INC-2020318228

PATIENT
  Age: 76 Year
  Sex: Female
  Weight: 69 kg

DRUGS (1)
  1. CELEBREX [Suspect]
     Active Substance: CELECOXIB
     Indication: ARTHRITIS
     Dosage: 400 MG, 1X/DAY (200MG 2 CAPSULE BY MOUTH ONCE A DAY IN THE MORNING )
     Route: 048

REACTIONS (2)
  - Upper limb fracture [Unknown]
  - Impaired driving ability [Recovered/Resolved]

NARRATIVE: CASE EVENT DATE: 20200725
